FAERS Safety Report 9064117 (Version 1)
Quarter: 2013Q1

REPORT INFORMATION
  Report Type: Report from Study
  Country: US (occurrence: US)
  Receive Date: 20130131
  Receipt Date: 20130131
  Transmission Date: 20140127
  Serious: No
  Sender: FDA-Public Use
  Company Number: US-ABBOTT-12P-163-1022642-00

PATIENT
  Age: 27 Year
  Sex: Female

DRUGS (2)
  1. HUMIRA [Suspect]
     Indication: CROHN^S DISEASE
     Dates: start: 20121029
  2. ASACOL [Concomitant]
     Indication: CROHN^S DISEASE
     Dosage: 3 IN MORNING AND 3 AT NIGHT

REACTIONS (2)
  - Cough [Not Recovered/Not Resolved]
  - Epistaxis [Not Recovered/Not Resolved]
